FAERS Safety Report 12758792 (Version 1)
Quarter: 2016Q3

REPORT INFORMATION
  Report Type: Spontaneous
  Country: US (occurrence: US)
  Receive Date: 20160918
  Receipt Date: 20160918
  Transmission Date: 20161109
  Serious: Yes (Other)
  Sender: FDA-Public Use
  Company Number: None

PATIENT
  Age: 34 Year
  Sex: Female
  Weight: 53.55 kg

DRUGS (1)
  1. HYOSCYAMINE SULFATE .125 [Suspect]
     Active Substance: HYOSCYAMINE SULFATE
     Indication: ABDOMINAL PAIN UPPER
     Route: 048
     Dates: start: 20160728

REACTIONS (5)
  - Photophobia [None]
  - Vision blurred [None]
  - Rash [None]
  - Confusional state [None]
  - Pruritus [None]

NARRATIVE: CASE EVENT DATE: 20160824
